FAERS Safety Report 7239521-5 (Version None)
Quarter: 2011Q1

REPORT INFORMATION
  Report Type: 
  Country: None (occurrence: None)
  Receive Date: 20110121
  Receipt Date: 20110118
  Transmission Date: 20110831
  Serious: Yes (Hospitalization)
  Sender: FDA-Public Use
  Company Number: BR-ABBOTT-10P-020-0691233-00

PATIENT
  Sex: Male
  Weight: 97 kg

DRUGS (7)
  1. MAGNESIUM 150 MG/B1 VITAMIN 100 MG [Concomitant]
     Indication: MUSCLE SPASMS
     Route: 048
  2. METHOTREXATE [Suspect]
     Indication: RHEUMATOID ARTHRITIS
     Route: 048
  3. AMITRIPTYLINE [Concomitant]
     Indication: ANXIETY
     Route: 048
  4. ENALAPRIL [Concomitant]
     Indication: HYPERTENSION
     Route: 048
     Dates: start: 20100901
  5. HUMIRA [Suspect]
     Indication: RHEUMATOID ARTHRITIS
     Route: 058
     Dates: start: 20101101
  6. ANTI-INFLAMMATORY DRUGS [Concomitant]
     Indication: PRODUCT USED FOR UNKNOWN INDICATION
  7. METHYLPREDNISOLONE ACETATE [Concomitant]
     Indication: PAIN
     Route: 042

REACTIONS (8)
  - NECK PAIN [None]
  - PANCREATITIS [None]
  - TOXICITY TO VARIOUS AGENTS [None]
  - PAIN IN EXTREMITY [None]
  - PAIN [None]
  - ARTHRALGIA [None]
  - BACK PAIN [None]
  - DRUG INEFFECTIVE [None]
